FAERS Safety Report 6136097-0 (Version None)
Quarter: 2009Q1

REPORT INFORMATION
  Report Type: 
  Country: None (occurrence: None)
  Receive Date: 20090330
  Receipt Date: 20090320
  Transmission Date: 20090719
  Serious: Yes (Other)
  Sender: FDA-Public Use
  Company Number: US-AMGEN-US339516

PATIENT
  Age: 17 Year
  Sex: Female
  Weight: 66.1 kg

DRUGS (4)
  1. ENBREL [Suspect]
     Indication: SPONDYLOARTHROPATHY
     Route: 058
  2. SULINDAC [Concomitant]
     Route: 065
  3. SULFASALAZINE [Concomitant]
     Route: 065
  4. RANITIDINE [Concomitant]
     Route: 065

REACTIONS (2)
  - CHOREA [None]
  - PSYCHOSOMATIC DISEASE [None]
